FAERS Safety Report 24256969 (Version 1)
Quarter: 2024Q3

REPORT INFORMATION
  Report Type: Spontaneous
  Country: AU (occurrence: AU)
  Receive Date: 20240828
  Receipt Date: 20240828
  Transmission Date: 20241017
  Serious: Yes (Other)
  Sender: CSL BEHRING
  Company Number: AU-BEH-2024177557

PATIENT
  Age: 74 Year
  Sex: Male
  Weight: 77 kg

DRUGS (1)
  1. HUMAN IMMUNOGLOBULIN G [Suspect]
     Active Substance: HUMAN IMMUNOGLOBULIN G
     Indication: Hypogammaglobulinaemia
     Dosage: 30 G
     Route: 042
     Dates: start: 20240815, end: 20240815

REACTIONS (6)
  - Chills [Recovered/Resolved]
  - Back pain [Recovered/Resolved]
  - Hypotension [Recovered/Resolved]
  - Blood pressure increased [Unknown]
  - Nausea [Unknown]
  - Hyperhidrosis [Unknown]

NARRATIVE: CASE EVENT DATE: 20240815
